FAERS Safety Report 25422753 (Version 1)
Quarter: 2025Q2

REPORT INFORMATION
  Report Type: Spontaneous
  Country: US (occurrence: None)
  Receive Date: 20250610
  Receipt Date: 20250610
  Transmission Date: 20250717
  Serious: Yes (Hospitalization)
  Sender: FDA-CTU
  Company Number: None

PATIENT
  Age: 37 Year
  Sex: Male
  Weight: 114 kg

DRUGS (3)
  1. TRAZODONE HCL [Suspect]
     Active Substance: TRAZODONE HYDROCHLORIDE
     Indication: Sleep disorder
     Dosage: FREQUENCY : AT BEDTIME;?
     Route: 048
     Dates: start: 20250305, end: 20250305
  2. MIRTAZAPINE [Suspect]
     Active Substance: MIRTAZAPINE
  3. DOXEPIN [Suspect]
     Active Substance: DOXEPIN

REACTIONS (1)
  - Mania [None]

NARRATIVE: CASE EVENT DATE: 20250306
